FAERS Safety Report 5084126-8 (Version None)
Quarter: 2006Q3

REPORT INFORMATION
  Report Type: 
  Country: None (occurrence: None)
  Receive Date: 20060816
  Receipt Date: 20060808
  Transmission Date: 20061208
  Serious: Yes (Hospitalization)
  Sender: FDA-Public Use
  Company Number: 2006BI009788

PATIENT
  Age: 62 Year
  Sex: Female

DRUGS (5)
  1. AVONEX [Suspect]
     Indication: MULTIPLE SCLEROSIS
     Dosage: 30 UG; QW; IM
     Route: 030
     Dates: start: 20051011
  2. SINGULAIR [Concomitant]
  3. COZAAR [Concomitant]
  4. LEXAPRO [Concomitant]
  5. NORVASC [Concomitant]

REACTIONS (3)
  - METASTASES TO BONE [None]
  - METASTASES TO SPINE [None]
  - MULTIPLE MYELOMA [None]
